FAERS Safety Report 9053257 (Version 1)
Quarter: 2013Q1

REPORT INFORMATION
  Report Type: Spontaneous
  Country: US (occurrence: US)
  Receive Date: 20130207
  Receipt Date: 20130207
  Transmission Date: 20140127
  Serious: Yes (Death, Hospitalization)
  Sender: FDA-Public Use
  Company Number: PHEH2013US002761

PATIENT
  Age: 70 None
  Sex: Female

DRUGS (18)
  1. FEMARA [Suspect]
     Indication: BREAST CANCER METASTATIC
     Dosage: UNK
     Dates: start: 201108
  2. XELODA [Suspect]
     Indication: BREAST CANCER METASTATIC
     Dosage: UNK
     Dates: start: 20090819
  3. AROMASIN [Suspect]
     Indication: BREAST CANCER METASTATIC
     Dosage: 25 MG DAILY
     Dates: start: 201205
  4. TYKERB [Suspect]
     Indication: BREAST CANCER METASTATIC
     Dosage: 1250 MG DAILY
     Route: 048
     Dates: start: 20090819
  5. ULTRA [Concomitant]
  6. EXELON [Concomitant]
  7. KCL [Concomitant]
  8. LISINOPRIL [Concomitant]
  9. MILK OF MAGNESIA [Concomitant]
  10. NAMENDA [Concomitant]
  11. OMEPRAZOLE [Concomitant]
  12. TOPROL XL [Concomitant]
  13. OSCAL [Concomitant]
  14. TYLENOL [Concomitant]
  15. MEMANTINE HYDROCHLORIDE [Concomitant]
  16. METOPROLOL SUCCINATE [Concomitant]
  17. PARACETAMOL [Concomitant]
  18. CALCIUM CARBONATE [Concomitant]

REACTIONS (6)
  - Death [Fatal]
  - Hip fracture [Unknown]
  - Clavicle fracture [Unknown]
  - Impaired healing [Unknown]
  - Abasia [Unknown]
  - Dysphagia [Unknown]
